FAERS Safety Report 18502993 (Version 1)
Quarter: 2020Q4

REPORT INFORMATION
  Report Type: Spontaneous
  Country: FR (occurrence: FR)
  Receive Date: 20201113
  Receipt Date: 20201113
  Transmission Date: 20210114
  Serious: Yes (Death, Life-Threatening, Hospitalization, Disabling, Other)
  Sender: FDA-Public Use
  Company Number: NVSC2020FR303407

PATIENT

DRUGS (1)
  1. CETIRIZINE HYDROCHLORIDE. [Suspect]
     Active Substance: CETIRIZINE HYDROCHLORIDE
     Indication: PRODUCT USED FOR UNKNOWN INDICATION
     Route: 065

REACTIONS (136)
  - Drug reaction with eosinophilia and systemic symptoms [Fatal]
  - Rash [Fatal]
  - Aspartate aminotransferase increased [Fatal]
  - Fungal infection [Fatal]
  - Antinuclear antibody positive [Fatal]
  - Alanine aminotransferase increased [Fatal]
  - Myoclonus [Fatal]
  - Anxiety [Fatal]
  - Nausea [Fatal]
  - Insomnia [Fatal]
  - Tongue oedema [Fatal]
  - Toxic epidermal necrolysis [Fatal]
  - Angina pectoris [Fatal]
  - Anaphylactic reaction [Fatal]
  - Pruritus [Fatal]
  - Hemiparesis [Fatal]
  - Coronary artery occlusion [Fatal]
  - Infection [Fatal]
  - Epistaxis [Fatal]
  - Cerebral haematoma [Fatal]
  - Glaucoma [Fatal]
  - Hepatitis [Fatal]
  - Genital lesion [Fatal]
  - Mitral valve incompetence [Fatal]
  - Haemorrhage [Fatal]
  - Off label use [Unknown]
  - Pancreatitis acute [Fatal]
  - Eyelid oedema [Fatal]
  - Mydriasis [Fatal]
  - Tubulointerstitial nephritis [Fatal]
  - Subdural haematoma [Fatal]
  - Extrasystoles [Fatal]
  - Acute hepatic failure [Fatal]
  - Eosinophilia [Fatal]
  - Oedema mucosal [Fatal]
  - Vomiting [Fatal]
  - Arthralgia [Fatal]
  - Myalgia [Fatal]
  - Cerebral vasoconstriction [Fatal]
  - Localised oedema [Fatal]
  - Coronary artery disease [Fatal]
  - Hypertension [Fatal]
  - Stevens-Johnson syndrome [Fatal]
  - Coma [Fatal]
  - Lip oedema [Fatal]
  - Mouth ulceration [Fatal]
  - Retinal artery occlusion [Fatal]
  - Acute kidney injury [Fatal]
  - Chest pain [Fatal]
  - Conjunctival abrasion [Fatal]
  - Immune thrombocytopenia [Fatal]
  - Electrocardiogram abnormal [Fatal]
  - Aortic dissection rupture [Fatal]
  - Erythema multiforme [Fatal]
  - Transaminases increased [Fatal]
  - Anaemia [Fatal]
  - Death [Fatal]
  - Cerebrovascular accident [Fatal]
  - Dyspnoea [Fatal]
  - Toxic skin eruption [Fatal]
  - Cell death [Fatal]
  - Amnesia [Fatal]
  - Transient ischaemic attack [Fatal]
  - Neck pain [Fatal]
  - Anaphylactic shock [Fatal]
  - Myocardial infarction [Fatal]
  - Dizziness [Fatal]
  - Seizure [Fatal]
  - Confusional state [Fatal]
  - Leukocytosis [Fatal]
  - Nasal septum perforation [Fatal]
  - Intraventricular haemorrhage [Fatal]
  - Hyperlipasaemia [Fatal]
  - Urticaria [Fatal]
  - Choroidal infarction [Fatal]
  - Lymphadenitis [Fatal]
  - Toxicity to various agents [Fatal]
  - Gingival bleeding [Fatal]
  - Tachycardia [Fatal]
  - Dry mouth [Fatal]
  - Pyrexia [Fatal]
  - Poisoning [Fatal]
  - Gingivitis [Fatal]
  - Delusion [Fatal]
  - Peritonsillar abscess [Fatal]
  - Enanthema [Fatal]
  - Pain in extremity [Fatal]
  - Lymphadenopathy [Fatal]
  - Carotid artery dissection [Fatal]
  - Product prescribing error [Unknown]
  - Pulmonary embolism [Fatal]
  - Drug level increased [Fatal]
  - Symmetrical drug-related intertriginous and flexural exanthema [Fatal]
  - Retinal vein occlusion [Fatal]
  - Rash macular [Fatal]
  - Dementia [Fatal]
  - Abdominal pain [Fatal]
  - Erythema [Fatal]
  - Asthma [Fatal]
  - Agranulocytosis [Fatal]
  - Blister [Fatal]
  - Hallucination, visual [Fatal]
  - Cholestasis [Fatal]
  - Hallucination [Fatal]
  - Dysarthria [Fatal]
  - Shock haemorrhagic [Fatal]
  - Urinary retention [Fatal]
  - Acute myocardial infarction [Fatal]
  - Face oedema [Fatal]
  - Mucosal inflammation [Fatal]
  - Respiratory distress [Fatal]
  - Hemiplegia [Fatal]
  - Pharyngeal oedema [Fatal]
  - Dysphagia [Fatal]
  - Hyperhidrosis [Fatal]
  - Cerebral haemorrhage [Fatal]
  - Fall [Fatal]
  - Arterial occlusive disease [Fatal]
  - Dermatitis allergic [Fatal]
  - Blindness [Fatal]
  - Platelet count decreased [Fatal]
  - Petechiae [Fatal]
  - Purpura [Fatal]
  - Headache [Fatal]
  - Cardiac failure [Fatal]
  - Palpitations [Fatal]
  - Colitis ischaemic [Fatal]
  - Subarachnoid haemorrhage [Fatal]
  - Rectal haemorrhage [Fatal]
  - Acute coronary syndrome [Fatal]
  - Anuria [Fatal]
  - Executive dysfunction [Fatal]
  - Neutropenia [Fatal]
  - Gastrointestinal haemorrhage [Fatal]
  - Nightmare [Fatal]
  - Hemianopia homonymous [Fatal]
